FAERS Safety Report 7446858-3 (Version None)
Quarter: 2011Q2

REPORT INFORMATION
  Report Type: 
  Country: None (occurrence: None)
  Receive Date: 20110429
  Receipt Date: 20110428
  Transmission Date: 20111010
  Serious: Yes (Other)
  Sender: FDA-Public Use
  Company Number: US-PFIZER INC-2011092179

PATIENT
  Sex: Female

DRUGS (3)
  1. CHANTIX [Suspect]
     Dosage: UNK
  2. LORTAB [Concomitant]
     Dosage: UNK
  3. PERCOCET [Concomitant]
     Dosage: UNK

REACTIONS (1)
  - SURGERY [None]
